FAERS Safety Report 5735191-3 (Version None)
Quarter: 2008Q2

REPORT INFORMATION
  Report Type: 
  Country: None (occurrence: None)
  Receive Date: 20080508
  Receipt Date: 20080508
  Transmission Date: 20081010
  Serious: Yes (Disabling)
  Sender: FDA-Public Use
  Company Number: None

PATIENT
  Age: 25 Year
  Sex: Female
  Weight: 56.6996 kg

DRUGS (2)
  1. CREST PRO-HEALTH RINSE PROCTOR AND GAMBLE [Suspect]
     Indication: DENTAL PLAQUE
     Dosage: MOUTHFUL TWICE DAILY PO
     Route: 048
     Dates: start: 20071210, end: 20080108
  2. CREST PRO-HEALTH RINSE PROCTOR AND GAMBLE [Suspect]
     Indication: GINGIVITIS
     Dosage: MOUTHFUL TWICE DAILY PO
     Route: 048
     Dates: start: 20071210, end: 20080108

REACTIONS (3)
  - HYPOGEUSIA [None]
  - PARAESTHESIA ORAL [None]
  - TOOTH DISCOLOURATION [None]
